FAERS Safety Report 8487909-7 (Version None)
Quarter: 2012Q3

REPORT INFORMATION
  Report Type: 
  Country: None (occurrence: None)
  Receive Date: 20120705
  Receipt Date: 20120629
  Transmission Date: 20120928
  Serious: Yes (Hospitalization, Other)
  Sender: FDA-Public Use
  Company Number: FR-PFIZER INC-2012156399

PATIENT
  Age: 84 Year
  Sex: Female

DRUGS (10)
  1. NOVORAPID FLEXPEN [Concomitant]
     Dosage: 22 IU, UNK
     Route: 058
  2. ATORVASTATIN [Concomitant]
     Dosage: 40 MG, 1X/DAY
     Route: 048
  3. NITROGLYCERIN [Concomitant]
     Dosage: 15 MG, 2X/DAY
     Route: 062
  4. LANTUS [Concomitant]
     Dosage: 28 IU, 1X/DAY
     Route: 058
  5. IKOREL [Concomitant]
  6. ADANCOR [Concomitant]
     Dosage: 20 MG, 2X/DAY
     Route: 048
  7. KARDEGIC [Concomitant]
     Dosage: 75 MG, DAILY
     Route: 048
  8. OMEPRAZOLE [Concomitant]
  9. AMLODIPINE BESYLATE [Suspect]
     Dosage: 5 MG, 1X/DAY
     Route: 048
     Dates: end: 20111215
  10. SECTRAL [Suspect]
     Dosage: 500 MG, 1X/DAY
     Route: 048
     Dates: end: 20111221

REACTIONS (6)
  - HYPOTENSION [None]
  - ANTINUCLEAR ANTIBODY POSITIVE [None]
  - THROMBOCYTOPENIA [None]
  - RETINAL HAEMORRHAGE [None]
  - LUPUS-LIKE SYNDROME [None]
  - DEEP VEIN THROMBOSIS [None]
